FAERS Safety Report 6088472-0 (Version None)
Quarter: 2009Q1

REPORT INFORMATION
  Report Type: 
  Country: None (occurrence: None)
  Receive Date: 20090224
  Receipt Date: 20090217
  Transmission Date: 20090719
  Serious: Yes (Life-Threatening, Other)
  Sender: FDA-Public Use
  Company Number: CA-ALLERGAN-0807175US

PATIENT
  Sex: Female

DRUGS (5)
  1. BOTOX COSMETIC [Suspect]
     Indication: BRACHYCEPHALY
     Dosage: 100 UNITS, SINGLE
  2. SENSORCAINE [Suspect]
     Indication: BRACHYCEPHALY
     Dosage: 50 MG, SINGLE
  3. SENSORCAINE [Suspect]
     Dosage: 10 MG, SINGLE
  4. LITHIUM [Concomitant]
     Indication: BIPOLAR DISORDER
  5. MORPHINE [Concomitant]
     Indication: BRACHYCEPHALY
     Dosage: 1 MG, TID
     Route: 008

REACTIONS (3)
  - APHONIA [None]
  - HYPOTENSION [None]
  - RESPIRATORY ARREST [None]
